FAERS Safety Report 16700468 (Version 1)
Quarter: 2019Q3

REPORT INFORMATION
  Report Type: Spontaneous
  Country: US (occurrence: US)
  Receive Date: 20190814
  Receipt Date: 20190814
  Transmission Date: 20191004
  Serious: No
  Sender: FDA-Public Use
  Company Number: US-ELI_LILLY_AND_COMPANY-US201907010146

PATIENT
  Sex: Male

DRUGS (1)
  1. TALTZ [Suspect]
     Active Substance: IXEKIZUMAB
     Indication: PSORIATIC ARTHROPATHY
     Dosage: 80 MG, UNKNOWN
     Route: 058
     Dates: start: 201807

REACTIONS (7)
  - Pain [Unknown]
  - Confusional state [Unknown]
  - Psoriasis [Unknown]
  - Gait disturbance [Unknown]
  - Depressed mood [Unknown]
  - Product dose omission [Unknown]
  - Nervousness [Unknown]

NARRATIVE: CASE EVENT DATE: 20190710
